FAERS Safety Report 16004319 (Version 1)
Quarter: 2019Q1

REPORT INFORMATION
  Report Type: Spontaneous
  Country: US (occurrence: US)
  Receive Date: 20190225
  Receipt Date: 20190225
  Transmission Date: 20190418
  Serious: Yes (Other)
  Sender: FDA-Public Use
  Company Number: None

PATIENT
  Age: 67 Year
  Sex: Male
  Weight: 111.1 kg

DRUGS (15)
  1. PEPCID [Concomitant]
     Active Substance: FAMOTIDINE
  2. GLUCOSAMINE [Concomitant]
     Active Substance: GLUCOSAMINE
  3. ASPIRIN. [Concomitant]
     Active Substance: ASPIRIN
  4. ACIDOPHILUS BIOBEADS [Concomitant]
  5. OXALIPLATIN. [Concomitant]
     Active Substance: OXALIPLATIN
  6. VENOFER [Concomitant]
     Active Substance: IRON SUCROSE
  7. CAPECITABINE. [Suspect]
     Active Substance: CAPECITABINE
     Indication: APPENDIX CANCER
     Route: 048
     Dates: start: 20181005, end: 20190225
  8. FLUOROURACIL. [Concomitant]
     Active Substance: FLUOROURACIL
  9. LEUCOVORIN. [Concomitant]
     Active Substance: LEUCOVORIN
  10. EMEND [Concomitant]
     Active Substance: APREPITANT
  11. DEXAMETHASONE. [Concomitant]
     Active Substance: DEXAMETHASONE
  12. ELIQUIS [Concomitant]
     Active Substance: APIXABAN
  13. DIPHENHYDRAMINE. [Concomitant]
     Active Substance: DIPHENHYDRAMINE
  14. PALONOSETRON. [Concomitant]
     Active Substance: PALONOSETRON HYDROCHLORIDE
  15. PROTONIX [Concomitant]
     Active Substance: PANTOPRAZOLE SODIUM

REACTIONS (1)
  - Diarrhoea [None]
